FAERS Safety Report 14934240 (Version 2)
Quarter: 2018Q3

REPORT INFORMATION
  Report Type: Spontaneous
  Country: US (occurrence: US)
  Receive Date: 20180524
  Receipt Date: 20180711
  Transmission Date: 20181010
  Serious: Yes (Hospitalization)
  Sender: FDA-Public Use
  Company Number: US-ASTRAZENECA-2018SE68064

PATIENT
  Sex: Male

DRUGS (1)
  1. NEXIUM 24HR [Suspect]
     Active Substance: ESOMEPRAZOLE MAGNESIUM
     Route: 048

REACTIONS (5)
  - Incorrect dose administered [Unknown]
  - Product physical issue [Unknown]
  - Poor quality drug administered [Unknown]
  - Gastrooesophageal reflux disease [Unknown]
  - Incorrect drug administration duration [Unknown]
